FAERS Safety Report 7541237-2 (Version None)
Quarter: 2011Q2

REPORT INFORMATION
  Report Type: 
  Country: None (occurrence: None)
  Receive Date: 20110610
  Receipt Date: 20110529
  Transmission Date: 20111010
  Serious: Yes (Other)
  Sender: FDA-Public Use
  Company Number: US-MERCK-0304USA00046

PATIENT
  Age: 60 Year
  Sex: Female

DRUGS (8)
  1. DEXAMETHASONE [Concomitant]
     Route: 065
  2. THEOPHYLLINE [Concomitant]
     Route: 065
  3. PROZAC [Concomitant]
     Route: 065
  4. PEPCID [Suspect]
     Route: 048
  5. DILTIAZEM HYDROCHLORIDE [Concomitant]
     Route: 065
  6. ALBUTEROL [Concomitant]
     Route: 065
  7. PERCOCET [Concomitant]
     Route: 065
  8. CIPROFLOXACIN [Concomitant]
     Route: 065

REACTIONS (6)
  - PRURITUS [None]
  - STAPHYLOCOCCAL INFECTION [None]
  - LEUKOCYTOSIS [None]
  - ACUTE GENERALISED EXANTHEMATOUS PUSTULOSIS [None]
  - EOSINOPHIL COUNT DECREASED [None]
  - NEUTROPHILIA [None]
